FAERS Safety Report 4355079-2 (Version None)
Quarter: 2004Q2

REPORT INFORMATION
  Report Type: 
  Country: None (occurrence: None)
  Receive Date: 20040504
  Receipt Date: 20040420
  Transmission Date: 20050107
  Serious: Yes (Death)
  Sender: FDA-Public Use
  Company Number: 04P-144-0258166-00

PATIENT
  Age: 52 Year
  Sex: Male
  Weight: 51 kg

DRUGS (12)
  1. HUMIRA [Suspect]
     Indication: RHEUMATOID ARTHRITIS
     Dosage: 40 MG, 1 IN 2 WK, SUBCUTANEOUS
     Route: 058
     Dates: start: 20030705, end: 20040414
  2. SODIUM AUROTHIOMALATE [Concomitant]
  3. METHOTREXATE [Concomitant]
  4. AURANOFIN [Concomitant]
  5. CHLOROQUINE [Concomitant]
  6. AZATHIOPRINE [Concomitant]
  7. CYCLOSPORINE [Concomitant]
  8. SULFASALAZINE [Concomitant]
  9. PENICILLAMINE [Concomitant]
  10. LEFLUNOMIDE [Concomitant]
  11. ALENDRONATE SODIUM [Concomitant]
  12. DEFLAZACORT [Concomitant]

REACTIONS (1)
  - DEATH [None]
